FAERS Safety Report 9381559 (Version 1)
Quarter: 2013Q3

REPORT INFORMATION
  Report Type: Spontaneous
  Country: US (occurrence: US)
  Receive Date: 20130703
  Receipt Date: 20130703
  Transmission Date: 20140515
  Serious: Yes (Hospitalization)
  Sender: FDA-Public Use
  Company Number: US-SP-2013-06115

PATIENT
  Age: 21 Year
  Sex: Male

DRUGS (2)
  1. MENACTRA [Suspect]
     Indication: IMMUNISATION
     Dosage: NOT REPORTED
     Route: 030
     Dates: start: 20080626, end: 20080626
  2. TUBERSOL [Suspect]
     Dosage: NOT REPORTED
     Route: 065
     Dates: start: 20130520, end: 20130520

REACTIONS (11)
  - Meningitis [Recovered/Resolved]
  - Syncope [Recovered/Resolved]
  - Headache [Recovered/Resolved]
  - Pyrexia [Recovered/Resolved]
  - Musculoskeletal stiffness [Recovered/Resolved]
  - Chills [Recovered/Resolved]
  - Photophobia [Recovered/Resolved]
  - Decreased appetite [Recovered/Resolved]
  - Nausea [Recovered/Resolved]
  - Malaise [Recovered/Resolved]
  - Asthenia [Recovered/Resolved]
